FAERS Safety Report 5938306-7 (Version None)
Quarter: 2008Q4

REPORT INFORMATION
  Report Type: 
  Country: None (occurrence: None)
  Receive Date: 20081103
  Receipt Date: 20081020
  Transmission Date: 20090506
  Serious: Yes (Hospitalization)
  Sender: FDA-Public Use
  Company Number: US-RB-005103-08

PATIENT
  Sex: Male
  Weight: 225 kg

DRUGS (3)
  1. INDOMETHACIN [Concomitant]
     Route: 048
     Dates: start: 20070522
  2. DEXTROMETHORPHAN [Suspect]
     Dates: start: 20080307, end: 20080307
  3. BLINDED THERAPY [Suspect]
     Indication: OBESITY
     Route: 048
     Dates: start: 20070418, end: 20080319

REACTIONS (1)
  - PSYCHOTIC DISORDER [None]
